FAERS Safety Report 22088941 (Version 1)
Quarter: 2023Q1

REPORT INFORMATION
  Report Type: Spontaneous
  Country: US (occurrence: None)
  Receive Date: 20230311
  Receipt Date: 20230311
  Transmission Date: 20230418
  Serious: No
  Sender: FDA-Public Use
  Company Number: None

PATIENT
  Age: 68 Year
  Sex: Male
  Weight: 85.5 kg

DRUGS (3)
  1. ZYPITAMAG [Suspect]
     Active Substance: PITAVASTATIN
     Indication: Blood cholesterol increased
     Dosage: OTHER QUANTITY : 1 TABLET(S);?FREQUENCY : DAILY;?
     Route: 048
     Dates: start: 20230212, end: 20230306
  2. LISINOPRIL [Concomitant]
     Active Substance: LISINOPRIL
  3. GARLIQUE [Concomitant]
     Active Substance: GARLIC

REACTIONS (8)
  - Arthralgia [None]
  - Myalgia [None]
  - Chills [None]
  - Pruritus [None]
  - Discomfort [None]
  - Pollakiuria [None]
  - Urine output decreased [None]
  - Dysuria [None]

NARRATIVE: CASE EVENT DATE: 20230305
